FAERS Safety Report 6419691-9 (Version None)
Quarter: 2009Q4

REPORT INFORMATION
  Report Type: 
  Country: None (occurrence: None)
  Receive Date: 20091029
  Receipt Date: 20091022
  Transmission Date: 20100525
  Serious: Yes (Hospitalization)
  Sender: FDA-Public Use
  Company Number: B0598047A

PATIENT
  Sex: Female
  Weight: 76.6 kg

DRUGS (2)
  1. LAPATINIB [Suspect]
     Dosage: 1250MG PER DAY
     Route: 048
     Dates: start: 20091006
  2. DOCETAXEL [Suspect]
     Dosage: 130MG EVERY 3 WEEKS
     Route: 042
     Dates: start: 20091006

REACTIONS (4)
  - NEUTROPHIL COUNT [None]
  - PULMONARY EMBOLISM [None]
  - PYREXIA [None]
  - RADIATION PNEUMONITIS [None]
